FAERS Safety Report 18343022 (Version 1)
Quarter: 2020Q4

REPORT INFORMATION
  Report Type: Spontaneous
  Country: US (occurrence: US)
  Receive Date: 20201005
  Receipt Date: 20201005
  Transmission Date: 20210113
  Serious: No
  Sender: FDA-Public Use
  Company Number: US-AUROBINDO-AUR-APL-2020-012407

PATIENT
  Age: 73 Year
  Sex: Female

DRUGS (2)
  1. MENTHOL. [Concomitant]
     Active Substance: MENTHOL
     Indication: PRODUCT USED FOR UNKNOWN INDICATION
     Dosage: AS NEEDED
     Route: 061
  2. SUMATRIPTAN TABLETS 100MG [Suspect]
     Active Substance: SUMATRIPTAN
     Indication: MIGRAINE
     Dosage: 1 DOSAGE FORM, DAILY (MAY REPEAT AFTER 2 HOURS)
     Route: 048

REACTIONS (3)
  - Therapeutic product effect delayed [Unknown]
  - Drug ineffective [Unknown]
  - Product substitution issue [Unknown]
